FAERS Safety Report 10328789 (Version 1)
Quarter: 2014Q3

REPORT INFORMATION
  Report Type: Spontaneous
  Country: GB (occurrence: GB)
  Receive Date: 20140721
  Receipt Date: 20140721
  Transmission Date: 20150326
  Serious: Yes (Hospitalization)
  Sender: FDA-Public Use
  Company Number: PHHY2014GB086211

PATIENT
  Age: 83 Year
  Sex: Male

DRUGS (2)
  1. CLINDAMYCIN [Suspect]
     Active Substance: CLINDAMYCIN\CLINDAMYCIN PHOSPHATE
     Dosage: 300 MG, QID
     Route: 048
     Dates: start: 20140702
  2. WARFARIN [Interacting]
     Active Substance: WARFARIN
     Dosage: 1 MG, UNK
     Dates: start: 20140701, end: 20140703

REACTIONS (2)
  - Drug interaction [Unknown]
  - International normalised ratio increased [Unknown]

NARRATIVE: CASE EVENT DATE: 20140703
